FAERS Safety Report 5517256-4 (Version None)
Quarter: 2007Q4

REPORT INFORMATION
  Report Type: 
  Country: None (occurrence: None)
  Receive Date: 20071114
  Receipt Date: 20070919
  Transmission Date: 20080405
  Serious: No
  Sender: FDA-Public Use
  Company Number: A0682581A

PATIENT
  Age: 54 Year
  Sex: Female

DRUGS (3)
  1. COMMIT [Suspect]
     Dates: start: 20070917, end: 20070918
  2. COMMIT [Suspect]
  3. WELLBUTRIN [Suspect]
     Indication: SMOKING CESSATION THERAPY
     Route: 048

REACTIONS (8)
  - ABDOMINAL PAIN UPPER [None]
  - COUGH [None]
  - DEPRESSION [None]
  - DRUG INEFFECTIVE [None]
  - DYSPEPSIA [None]
  - DYSPHONIA [None]
  - NICOTINE DEPENDENCE [None]
  - THROAT IRRITATION [None]
